FAERS Safety Report 13141675 (Version 1)
Quarter: 2017Q1

REPORT INFORMATION
  Report Type: Report from Study
  Country: None (occurrence: CA)
  Receive Date: 20170123
  Receipt Date: 20170123
  Transmission Date: 20170428
  Serious: Yes (Other)
  Sender: FDA-Public Use
  Company Number: CA-ABBVIE-17K-028-1840013-00

PATIENT
  Sex: Male

DRUGS (1)
  1. HUMIRA [Suspect]
     Active Substance: ADALIMUMAB
     Indication: CROHN^S DISEASE
     Route: 058
     Dates: start: 20160613, end: 2016

REACTIONS (3)
  - Epilepsy [Recovered/Resolved]
  - Epilepsy [Recovering/Resolving]
  - Brain neoplasm benign [Unknown]

NARRATIVE: CASE EVENT DATE: 2016
